FAERS Safety Report 18273842 (Version 1)
Quarter: 2020Q3

REPORT INFORMATION
  Report Type: Spontaneous
  Country: US (occurrence: US)
  Receive Date: 20200916
  Receipt Date: 20200916
  Transmission Date: 20201103
  Serious: Yes (Death, Other)
  Sender: FDA-Public Use
  Company Number: US-PURDUE-USA-2020-0165892

PATIENT
  Sex: Female

DRUGS (24)
  1. OXYCODONE/ ACETAMINOPHEN TABLETS [Suspect]
     Active Substance: ACETAMINOPHEN\OXYCODONE HYDROCHLORIDE
     Indication: PAIN
     Dosage: 10?325 MG, Q4H
     Route: 048
  2. OXYCODONE/ ACETAMINOPHEN TABLETS [Suspect]
     Active Substance: ACETAMINOPHEN\OXYCODONE HYDROCHLORIDE
     Dosage: 5?325 MG, UNK
     Route: 048
  3. METHADONE [Suspect]
     Active Substance: METHADONE HYDROCHLORIDE
     Dosage: 5 MG, DAILY
     Route: 048
  4. FERROUS SULFATE. [Concomitant]
     Active Substance: FERROUS SULFATE
     Indication: PRODUCT USED FOR UNKNOWN INDICATION
     Dosage: 325 MG, DAILY
     Route: 048
  5. LEFLUNOMIDE. [Concomitant]
     Active Substance: LEFLUNOMIDE
     Indication: PRODUCT USED FOR UNKNOWN INDICATION
     Dosage: 20 MG, DAILY
     Route: 048
  6. PREDNISONE. [Concomitant]
     Active Substance: PREDNISONE
     Dosage: 10 MG, DAILY, FOR THREE DAYS
     Route: 065
  7. GABAPENTIN. [Concomitant]
     Active Substance: GABAPENTIN
     Indication: PRODUCT USED FOR UNKNOWN INDICATION
     Dosage: 300 MG, BID
     Route: 048
  8. METHADONE [Suspect]
     Active Substance: METHADONE HYDROCHLORIDE
     Indication: PAIN
     Dosage: 10 MG, DAILY
     Route: 048
  9. PREDNISONE. [Concomitant]
     Active Substance: PREDNISONE
     Dosage: 20 MG, DAILY, FOR THREE DAYS
     Route: 065
  10. PREDNISONE. [Concomitant]
     Active Substance: PREDNISONE
     Dosage: 15 MG, DAILY, FOR THREE DAYS
     Route: 065
  11. PREDNISONE. [Concomitant]
     Active Substance: PREDNISONE
     Dosage: 5 MG, DAILY,FOR THREE DAYS
     Route: 065
  12. FOLIC ACID. [Concomitant]
     Active Substance: FOLIC ACID
     Indication: PRODUCT USED FOR UNKNOWN INDICATION
     Dosage: 1 MG, DAILY
     Route: 048
  13. CYANOCOBALAMIN. [Concomitant]
     Active Substance: CYANOCOBALAMIN
     Indication: PRODUCT USED FOR UNKNOWN INDICATION
     Dosage: 1 TABLET, DAILY
     Route: 048
  14. ADALIMUMAB [Concomitant]
     Active Substance: ADALIMUMAB
     Indication: PRODUCT USED FOR UNKNOWN INDICATION
     Dosage: 40 MG/0.8 ML, UNK
     Route: 058
  15. FLAXSEED [Concomitant]
     Active Substance: FLAX SEED
     Indication: PRODUCT USED FOR UNKNOWN INDICATION
     Dosage: 10.00 MG, DAILY
     Route: 048
  16. HYDROMORPHONE TABLETS [Suspect]
     Active Substance: HYDROMORPHONE
     Indication: PRODUCT USED FOR UNKNOWN INDICATION
     Dosage: 2 MG, UNK
     Route: 065
  17. METHADONE [Suspect]
     Active Substance: METHADONE HYDROCHLORIDE
     Indication: PAIN
     Dosage: 10 MG, Q12H
     Route: 048
  18. METHADONE [Suspect]
     Active Substance: METHADONE HYDROCHLORIDE
     Dosage: 5 MG, Q24H
     Route: 048
  19. LEVOTHYROXINE. [Concomitant]
     Active Substance: LEVOTHYROXINE
     Indication: PRODUCT USED FOR UNKNOWN INDICATION
     Dosage: 50 MCG, DAILY
     Route: 048
  20. SELENIUM [Concomitant]
     Active Substance: SELENIUM
     Indication: PRODUCT USED FOR UNKNOWN INDICATION
     Dosage: 100 MCG, DAILY
     Route: 048
  21. METHADONE [Suspect]
     Active Substance: METHADONE HYDROCHLORIDE
     Dosage: 20 MG, DAILY
     Route: 048
  22. PREDNISONE. [Concomitant]
     Active Substance: PREDNISONE
     Indication: PRODUCT USED FOR UNKNOWN INDICATION
     Dosage: 10 MG, PRN
     Route: 065
  23. ZINC SULFATE. [Concomitant]
     Active Substance: ZINC SULFATE
     Indication: PRODUCT USED FOR UNKNOWN INDICATION
     Dosage: 1 TABLET, DAILY
     Route: 048
  24. MELOXICAM. [Concomitant]
     Active Substance: MELOXICAM
     Indication: PRODUCT USED FOR UNKNOWN INDICATION
     Dosage: 15 MG, DAILY
     Route: 048

REACTIONS (47)
  - Foot deformity [Unknown]
  - Body mass index decreased [Unknown]
  - Lumbar radiculopathy [Unknown]
  - Gait disturbance [Unknown]
  - Dupuytren^s contracture [Unknown]
  - Overdose [Unknown]
  - Neck pain [Unknown]
  - Weight decreased [Unknown]
  - Mental disorder [Unknown]
  - Hypothyroidism [Unknown]
  - Neuropathy peripheral [Unknown]
  - Arrhythmia [Unknown]
  - Major depression [Unknown]
  - General physical condition abnormal [Unknown]
  - Somnolence [Unknown]
  - Death [Fatal]
  - Rheumatoid arthritis [Unknown]
  - Gastrooesophageal reflux disease [Unknown]
  - Varicose vein [Unknown]
  - Carpal tunnel syndrome [Unknown]
  - Intervertebral disc degeneration [Unknown]
  - Osteoarthritis [Unknown]
  - Trigger finger [Unknown]
  - Nausea [Unknown]
  - Drug tolerance [Unknown]
  - Electrocardiogram abnormal [Unknown]
  - Anaemia [Unknown]
  - Dyslipidaemia [Unknown]
  - Pain in extremity [Unknown]
  - Cardiac disorder [Unknown]
  - Back pain [Unknown]
  - Pain [Unknown]
  - Autoimmune thyroiditis [Unknown]
  - Immunosuppression [Unknown]
  - Osteopenia [Unknown]
  - Confusional state [Unknown]
  - Asthenia [Unknown]
  - Cardiac aneurysm [Unknown]
  - Hand deformity [Unknown]
  - Mitral valve prolapse [Unknown]
  - Spondylolisthesis [Unknown]
  - Attention deficit hyperactivity disorder [Unknown]
  - Irritability [Unknown]
  - Developmental delay [Unknown]
  - Drug dependence [Unknown]
  - Raynaud^s phenomenon [Unknown]
  - Hypoaesthesia [Unknown]

NARRATIVE: CASE EVENT DATE: 20180305
